FAERS Safety Report 15687087 (Version 1)
Quarter: 2018Q4

REPORT INFORMATION
  Report Type: Spontaneous
  Country: US (occurrence: US)
  Receive Date: 20181204
  Receipt Date: 20181204
  Transmission Date: 20190205
  Serious: Yes (Hospitalization, Other)
  Sender: FDA-Public Use
  Company Number: US-AMGEN-USASP2018173056

PATIENT
  Sex: Female

DRUGS (1)
  1. AIMOVIG [Suspect]
     Active Substance: ERENUMAB-AOOE
     Indication: HEADACHE
     Dosage: UNK
     Route: 065
     Dates: start: 2018

REACTIONS (5)
  - Faecaloma [Unknown]
  - Dehydration [Unknown]
  - Vomiting [Unknown]
  - Therapy non-responder [Unknown]
  - Constipation [Unknown]

NARRATIVE: CASE EVENT DATE: 2018
